FAERS Safety Report 4279475-7 (Version None)
Quarter: 2004Q1

REPORT INFORMATION
  Report Type: 
  Country: None (occurrence: None)
  Receive Date: 20040127
  Receipt Date: 20031229
  Transmission Date: 20041129
  Serious: Yes (Hospitalization)
  Sender: FDA-Public Use
  Company Number: FR-GLAXOSMITHKLINE-B0318647A

PATIENT
  Age: 70 Year
  Sex: Female

DRUGS (6)
  1. AVANDIA [Suspect]
     Indication: DIABETES MELLITUS NON-INSULIN-DEPENDENT
     Dosage: 2MG THREE TIMES PER DAY
     Route: 048
     Dates: start: 20030416, end: 20031202
  2. DEPAKOTE [Suspect]
     Indication: BIPOLAR I DISORDER
     Dosage: 250MG TWICE PER DAY
     Route: 048
     Dates: start: 20020523
  3. DIAMICRON [Concomitant]
     Indication: DIABETES MELLITUS NON-INSULIN-DEPENDENT
     Dosage: 30MG THREE TIMES PER DAY
     Route: 048
     Dates: start: 20021018
  4. LERCAN [Concomitant]
     Indication: HYPERTENSION
     Dosage: 10MG TWICE PER DAY
     Route: 048
     Dates: start: 20021018
  5. STILNOX [Concomitant]
     Indication: INSOMNIA
     Dosage: 10MG PER DAY
     Route: 048
     Dates: start: 20020523
  6. ZOFMIL [Concomitant]
     Indication: HYPERTENSION
     Dosage: 30MG PER DAY
     Route: 048
     Dates: start: 20021018

REACTIONS (4)
  - BLOOD CREATININE INCREASED [None]
  - OEDEMA PERIPHERAL [None]
  - RENAL FAILURE [None]
  - WEIGHT INCREASED [None]
